FAERS Safety Report 15626586 (Version 1)
Quarter: 2018Q4

REPORT INFORMATION
  Report Type: Spontaneous
  Country: AU (occurrence: US)
  Receive Date: 20181116
  Receipt Date: 20181116
  Transmission Date: 20190205
  Serious: Yes (Life-Threatening, Hospitalization, Other)
  Sender: FDA-Public Use
  Company Number: AU-G+W LABS-GW2018US000117

PATIENT

DRUGS (1)
  1. ACETAMINOPHEN. [Suspect]
     Active Substance: ACETAMINOPHEN
     Indication: PYREXIA
     Dosage: 150 ML, UNK
     Route: 048

REACTIONS (2)
  - Accidental overdose [Recovered/Resolved]
  - Hepatotoxicity [Recovered/Resolved]
